APPROVED DRUG PRODUCT: BRIDION
Active Ingredient: SUGAMMADEX SODIUM
Strength: EQ 200MG BASE/2ML (EQ 100MG BASE/ML)
Dosage Form/Route: SOLUTION;INTRAVENOUS
Application: N022225 | Product #002 | TE Code: AP
Applicant: MERCK SHARP AND DOHME LLC A SUB OF MERCK AND CO INC
Approved: Dec 15, 2015 | RLD: Yes | RS: No | Type: RX

PATENTS:
Patent RE44733 | Expires: Jan 27, 2026
Patent RE44733*PED | Expires: Jul 27, 2026

EXCLUSIVITY:
Code: PED | Date: Jun 12, 2028
Code: NPP | Date: Dec 12, 2027